FAERS Safety Report 13242648 (Version 1)
Quarter: 2017Q1

REPORT INFORMATION
  Report Type: Spontaneous
  Country: US (occurrence: US)
  Receive Date: 20170216
  Receipt Date: 20170216
  Transmission Date: 20170428
  Serious: Yes (Disabling, Other)
  Sender: FDA-Public Use
  Company Number: None

PATIENT
  Age: 5 Year
  Sex: Male
  Weight: 19.8 kg

DRUGS (1)
  1. CLEARLAX [Suspect]
     Active Substance: POLYETHYLENE GLYCOL 3350
     Indication: CONSTIPATION
     Dosage: ?          QUANTITY:1 17G;?
     Route: 048

REACTIONS (4)
  - Tic [None]
  - Obsessive-compulsive disorder [None]
  - Anxiety disorder [None]
  - Abnormal behaviour [None]

NARRATIVE: CASE EVENT DATE: 20170201
